FAERS Safety Report 6077463-1 (Version None)
Quarter: 2009Q1

REPORT INFORMATION
  Report Type: 
  Country: None (occurrence: None)
  Receive Date: 20090213
  Receipt Date: 20081118
  Transmission Date: 20090719
  Serious: No
  Sender: FDA-Public Use
  Company Number: A0757033A

PATIENT
  Age: 66 Year
  Sex: Female

DRUGS (6)
  1. TREXIMET [Suspect]
     Indication: MIGRAINE
     Dosage: .25TAB AS REQUIRED
     Route: 048
     Dates: start: 20081101
  2. LISINOPRIL [Concomitant]
  3. CRESTOR [Concomitant]
  4. FELODIPINE [Concomitant]
  5. TYLENOL (CAPLET) [Concomitant]
  6. CLARITIN-D [Concomitant]

REACTIONS (1)
  - DRUG INEFFECTIVE [None]
